FAERS Safety Report 6397705-2 (Version None)
Quarter: 2009Q4

REPORT INFORMATION
  Report Type: 
  Country: None (occurrence: None)
  Receive Date: 20091012
  Receipt Date: 20091002
  Transmission Date: 20100525
  Serious: Yes (Other)
  Sender: FDA-Public Use
  Company Number: US-WYE-H11406609

PATIENT
  Sex: Female

DRUGS (2)
  1. PREMARIN [Suspect]
  2. PREMARIN [Suspect]

REACTIONS (1)
  - OVARIAN CANCER METASTATIC [None]
